FAERS Safety Report 4744633-1 (Version None)
Quarter: 2005Q3

REPORT INFORMATION
  Report Type: 
  Country: None (occurrence: None)
  Receive Date: 20050815
  Receipt Date: 20050418
  Transmission Date: 20060218
  Serious: Yes (Hospitalization, Other)
  Sender: FDA-Public Use
  Company Number: PHFR2005GB01564

PATIENT
  Age: 74 Year
  Sex: Female
  Weight: 72 kg

DRUGS (4)
  1. ASPIRIN [Concomitant]
     Dosage: 75 MG/DAY
     Route: 048
     Dates: start: 19970101
  2. DIOVAN [Suspect]
     Dosage: 160 MG/DAY
     Route: 048
     Dates: start: 19970101, end: 20020721
  3. DIOVAN [Suspect]
     Dosage: 80 MG/DAY
     Route: 048
     Dates: start: 20020722, end: 20041021
  4. DIOVAN [Suspect]
     Dosage: 160 MG/DAY
     Route: 048
     Dates: end: 20050323

REACTIONS (5)
  - ARTERIAL LIGATION [None]
  - EPISTAXIS [None]
  - HAEMATURIA [None]
  - OCCULT BLOOD POSITIVE [None]
  - SEPTOPLASTY [None]
